FAERS Safety Report 19958217 (Version 1)
Quarter: 2021Q4

REPORT INFORMATION
  Report Type: Spontaneous
  Country: CN (occurrence: CN)
  Receive Date: 20211015
  Receipt Date: 20211015
  Transmission Date: 20220303
  Serious: Yes (Hospitalization)
  Sender: FDA-Public Use
  Company Number: CN-BAXTER-2021BAX026338

PATIENT
  Age: 44 Year
  Sex: Female
  Weight: 55 kg

DRUGS (13)
  1. CYCLOPHOSPHAMIDE [Suspect]
     Active Substance: CYCLOPHOSPHAMIDE
     Indication: Diffuse large B-cell lymphoma
     Dosage: CYCLOPHOSPHAMIDE 1.1G + 0.9% SODIUM CHLORIDE 100ML, DAY6
     Route: 041
     Dates: start: 20190415, end: 20190415
  2. SODIUM CHLORIDE [Suspect]
     Active Substance: SODIUM CHLORIDE
     Indication: Medication dilution
     Dosage: CYCLOPHOSPHAMIDE 1.1G + 0.9% SODIUM CHLORIDE 100ML, DAY6
     Route: 041
     Dates: start: 20190415, end: 20190415
  3. SODIUM CHLORIDE [Suspect]
     Active Substance: SODIUM CHLORIDE
     Dosage: MABTHERA 100MG + 0.9% SODIUM CHLORIDE 100ML, DAY 1
     Route: 041
     Dates: start: 20190410, end: 20190410
  4. SODIUM CHLORIDE [Suspect]
     Active Substance: SODIUM CHLORIDE
     Dosage: INTRA-PUMP INJECTION, VINCRISTINE SULFATE 0.5MG + 0.9% SODIUM CHLORIDE 300ML, DAY 2 TO DAY 6
     Route: 050
     Dates: start: 20190411, end: 20190415
  5. SODIUM CHLORIDE [Suspect]
     Active Substance: SODIUM CHLORIDE
     Dosage: INTRA-PUMP INJECTION, ETOPOSIDE 0.076G + 0.9% SODIUM CHLORIDE 300ML,DAY 2 TO DAY 6
     Route: 050
     Dates: start: 20190411, end: 20190415
  6. SODIUM CHLORIDE [Suspect]
     Active Substance: SODIUM CHLORIDE
     Dosage: MABTHERA 500MG + 0.9% SODIUM CHLORIDE 500ML, DAY 1
     Route: 041
     Dates: start: 20190410, end: 20190410
  7. DEXTROSE [Suspect]
     Active Substance: DEXTROSE
     Indication: Medication dilution
     Dosage: DOXORUBICIN LIPOSOME 20 MG + 5% GLUCOSE 250ML, DAY 2 TO DAY 4
     Route: 041
     Dates: start: 20190411, end: 20190413
  8. MABTHERA [Suspect]
     Active Substance: RITUXIMAB
     Indication: Diffuse large B-cell lymphoma
     Dosage: MABTHERA 100MG + 0.9% SODIUM CHLORIDE 100ML, DAY 1
     Route: 041
     Dates: start: 20190410, end: 20190410
  9. MABTHERA [Suspect]
     Active Substance: RITUXIMAB
     Dosage: MABTHERA 500MG + 0.9% SODIUM CHLORIDE 500ML, DAY 1
     Route: 041
     Dates: start: 20190410, end: 20190410
  10. ETOPOSIDE [Suspect]
     Active Substance: ETOPOSIDE
     Indication: Diffuse large B-cell lymphoma
     Dosage: INTRA-PUMP INJECTION, ETOPOSIDE 0.076G + 0.9% SODIUM CHLORIDE 300ML,DAY 2 TO DAY 6
     Route: 050
     Dates: start: 20190411, end: 20190415
  11. PREDNISONE ACETATE [Suspect]
     Active Substance: PREDNISONE ACETATE
     Indication: Diffuse large B-cell lymphoma
     Dosage: DAY 2 TO DAY 7
     Route: 048
     Dates: start: 20190411, end: 20190416
  12. VINCRISTINE SULFATE [Suspect]
     Active Substance: VINCRISTINE SULFATE
     Indication: Diffuse large B-cell lymphoma
     Dosage: INTRA-PUMP INJECTION, VINCRISTINE SULFATE 0.5MG + 0.9% SODIUM CHLORIDE 300ML, DAY 2 TO DAY 6
     Route: 050
     Dates: start: 20190411, end: 20190415
  13. DOXORUBICIN HYDROCHLORIDE [Suspect]
     Active Substance: DOXORUBICIN HYDROCHLORIDE
     Indication: Diffuse large B-cell lymphoma
     Dosage: DOXORUBICIN LIPOSOME 20 MG + 5% GLUCOSE 250ML, DAY 2 TO DAY4
     Route: 041
     Dates: start: 20190411, end: 20190413

REACTIONS (1)
  - Myelosuppression [Recovering/Resolving]

NARRATIVE: CASE EVENT DATE: 20190422
